FAERS Safety Report 8572737-4 (Version None)
Quarter: 2012Q2

REPORT INFORMATION
  Report Type: 
  Country: None (occurrence: None)
  Receive Date: 20120423
  Receipt Date: 20100211
  Transmission Date: 20120825
  Serious: Yes (Death)
  Sender: FDA-Public Use
  Company Number: PHEH2010US02195

PATIENT
  Age: 87 Year
  Sex: Male

DRUGS (2)
  1. VIDAZA [Suspect]
  2. EXJADE [Suspect]
     Indication: MYELODYSPLASTIC SYNDROME
     Dosage: 2000  MG, QD, ORAL
     Route: 048
     Dates: start: 20091023

REACTIONS (1)
  - NEOPLASM MALIGNANT [None]
